FAERS Safety Report 4404159-1 (Version None)
Quarter: 2004Q3

REPORT INFORMATION
  Report Type: 
  Country: None (occurrence: None)
  Receive Date: 20040721
  Receipt Date: 20040721
  Transmission Date: 20050211
  Serious: No
  Sender: FDA-Public Use
  Company Number: None

PATIENT
  Age: 57 Year
  Sex: Male
  Weight: 81.2 kg

DRUGS (22)
  1. CEPHALEXIN [Suspect]
     Indication: CELLULITIS
     Dosage: 500 MG PO
     Route: 048
     Dates: start: 20040119, end: 20040128
  2. POTASSIUM CHLORIDE [Concomitant]
  3. METRONIDAZOLE [Concomitant]
  4. DIPHENHYDRAMINE [Concomitant]
  5. SODIUM CHLORIDE INJ [Concomitant]
  6. DARBEPOETIN [Concomitant]
  7. ISOSORBIDE DINITRATE [Concomitant]
  8. HYDRALAZINE [Concomitant]
  9. CALCIUM CARBONATE [Concomitant]
  10. FERROUS SULFATE TAB [Concomitant]
  11. GUAIFENESIN SYRUP [Concomitant]
  12. PSEUDOEPHEDRINE HCL [Concomitant]
  13. ASPIRIN [Concomitant]
  14. CARVEDILOL [Concomitant]
  15. FINASTERIDE [Concomitant]
  16. OMEPRAZOLE [Concomitant]
  17. NICOTINE [Concomitant]
  18. BISMUTH SUBSALICYLATE [Concomitant]
  19. TERAZOSIN HCL [Concomitant]
  20. HEPARIN [Concomitant]
  21. SODIUM BICARBONATE [Concomitant]
  22. LACTOBACILLUS GRANULES [Concomitant]

REACTIONS (1)
  - CLOSTRIDIAL INFECTION [None]
